FAERS Safety Report 10679011 (Version 1)
Quarter: 2014Q4

REPORT INFORMATION
  Report Type: Spontaneous
  Country: US (occurrence: US)
  Receive Date: 20141229
  Receipt Date: 20141229
  Transmission Date: 20150529
  Serious: No
  Sender: FDA-Public Use
  Company Number: US-PFIZER INC-2014354482

PATIENT
  Sex: Male

DRUGS (1)
  1. DILANTIN [Suspect]
     Active Substance: PHENYTOIN
     Indication: SEIZURE
     Dosage: UNK

REACTIONS (6)
  - Aggression [Unknown]
  - Antisocial behaviour [Unknown]
  - Product quality issue [Unknown]
  - Logorrhoea [Unknown]
  - Abnormal behaviour [Unknown]
  - Disturbance in attention [Unknown]
